FAERS Safety Report 12998038 (Version 1)
Quarter: 2016Q4

REPORT INFORMATION
  Report Type: Spontaneous
  Country: US (occurrence: US)
  Receive Date: 20161202
  Receipt Date: 20161202
  Transmission Date: 20170207
  Serious: Yes (Hospitalization)
  Sender: FDA-Public Use
  Company Number: None

PATIENT
  Age: 83 Year
  Sex: Male
  Weight: 83.6 kg

DRUGS (23)
  1. ARICEPT [Concomitant]
     Active Substance: DONEPEZIL HYDROCHLORIDE
  2. SINEQUAN [Concomitant]
     Active Substance: DOXEPIN HYDROCHLORIDE
  3. COGENTIN [Concomitant]
     Active Substance: BENZTROPINE MESYLATE
  4. LUMIGAN [Concomitant]
     Active Substance: BIMATOPROST
  5. VITAMIN B12 [Concomitant]
     Active Substance: CYANOCOBALAMIN
  6. PROZAC [Concomitant]
     Active Substance: FLUOXETINE HYDROCHLORIDE
  7. ZOCOR [Concomitant]
     Active Substance: SIMVASTATIN
  8. CA CARBONATE [Concomitant]
  9. ADVAIR HFA [Concomitant]
     Active Substance: FLUTICASONE PROPIONATE\SALMETEROL XINAFOATE
  10. SONATA [Concomitant]
     Active Substance: ZALEPLON
  11. VITAMIN D [Concomitant]
     Active Substance: CHOLECALCIFEROL
  12. PERIDEX [Concomitant]
     Active Substance: CHLORHEXIDINE GLUCONATE
  13. APRESOLINE HYDROCHLORIDE [Concomitant]
     Active Substance: HYDRALAZINE HYDROCHLORIDE
  14. IMDUR [Concomitant]
     Active Substance: ISOSORBIDE MONONITRATE
  15. GEODON [Concomitant]
     Active Substance: ZIPRASIDONE HYDROCHLORIDE\ZIPRASIDONE MESYLATE
  16. KLONOPIN [Concomitant]
     Active Substance: CLONAZEPAM
  17. LASIX [Concomitant]
     Active Substance: FUROSEMIDE
  18. K-DUR [Concomitant]
     Active Substance: POTASSIUM CHLORIDE
  19. COZAAR [Concomitant]
     Active Substance: LOSARTAN POTASSIUM
  20. EXELON [Concomitant]
     Active Substance: RIVASTIGMINE TARTRATE
  21. ECOTRIN [Suspect]
     Active Substance: ASPIRIN
     Indication: DEEP VEIN THROMBOSIS
     Route: 048
  22. WARFARIN [Suspect]
     Active Substance: WARFARIN
     Indication: DEEP VEIN THROMBOSIS
     Route: 048
  23. COREG [Concomitant]
     Active Substance: CARVEDILOL

REACTIONS (10)
  - Coagulopathy [None]
  - International normalised ratio increased [None]
  - Sepsis [None]
  - Anaemia [None]
  - Melaena [None]
  - Escherichia urinary tract infection [None]
  - Hepatic function abnormal [None]
  - Unresponsive to stimuli [None]
  - Acute respiratory failure [None]
  - Gastrointestinal haemorrhage [None]

NARRATIVE: CASE EVENT DATE: 20160926
